FAERS Safety Report 11260879 (Version 15)
Quarter: 2020Q3

REPORT INFORMATION
  Report Type: Spontaneous
  Country: BR (occurrence: BR)
  Receive Date: 20150710
  Receipt Date: 20200703
  Transmission Date: 20201102
  Serious: Yes (Hospitalization, Other)
  Sender: FDA-Public Use
  Company Number: BR-GLAXOSMITHKLINE-BR2015GSK098504

PATIENT
  Age: 37 Year
  Sex: Female
  Weight: 74 kg

DRUGS (3)
  1. BENLYSTA [Suspect]
     Active Substance: BELIMUMAB
     Indication: SYSTEMIC LUPUS ERYTHEMATOSUS
     Dosage: UNK
     Route: 042
     Dates: start: 20160622
  2. BENLYSTA [Suspect]
     Active Substance: BELIMUMAB
     Dosage: UNK
     Dates: start: 20161128
  3. BENLYSTA [Suspect]
     Active Substance: BELIMUMAB
     Dosage: UNK
     Dates: start: 20170117

REACTIONS (20)
  - Back pain [Not Recovered/Not Resolved]
  - Headache [Unknown]
  - Inappropriate schedule of product administration [Unknown]
  - Protein urine present [Unknown]
  - Productive cough [Unknown]
  - Hypersensitivity [Unknown]
  - Swelling face [Unknown]
  - Therapeutic response unexpected [Unknown]
  - Hypertension [Unknown]
  - Blister [Unknown]
  - Product dose omission issue [Not Recovered/Not Resolved]
  - Pain [Not Recovered/Not Resolved]
  - Off label use [Unknown]
  - Systemic lupus erythematosus [Unknown]
  - Circumstance or information capable of leading to medication error [Unknown]
  - Therapy interrupted [Unknown]
  - Urinary tract infection [Unknown]
  - Surgery [Unknown]
  - Inflammation [Unknown]
  - Hypoaesthesia [Unknown]

NARRATIVE: CASE EVENT DATE: 201702
